FAERS Safety Report 13574849 (Version 1)
Quarter: 2017Q2

REPORT INFORMATION
  Report Type: Spontaneous
  Country: US (occurrence: US)
  Receive Date: 20170523
  Receipt Date: 20170523
  Transmission Date: 20170830
  Serious: No
  Sender: FDA-Public Use
  Company Number: US-ACORDA-ACO_128011_2016

PATIENT
  Age: 59 Year
  Sex: Female
  Weight: 108.93 kg

DRUGS (6)
  1. TRAZODONE [Concomitant]
     Active Substance: TRAZODONE HYDROCHLORIDE
     Indication: PRODUCT USED FOR UNKNOWN INDICATION
     Dosage: 50 MG, HS
     Route: 048
     Dates: start: 20160411, end: 20170203
  2. ATORVASTATIN CALCIUM. [Concomitant]
     Active Substance: ATORVASTATIN CALCIUM
     Indication: PRODUCT USED FOR UNKNOWN INDICATION
     Dosage: 80 MG, QD
     Route: 048
     Dates: start: 20170411, end: 20170203
  3. QUTENZA [Suspect]
     Active Substance: CAPSAICIN
     Indication: POST HERPETIC NEURALGIA
     Dosage: 8 %, UNK
     Route: 061
     Dates: start: 20160810, end: 20160810
  4. NORCO [Concomitant]
     Active Substance: ACETAMINOPHEN\HYDROCODONE BITARTRATE
     Indication: PAIN
     Dosage: 5-325MG, EVERY 4-6 HOURS
     Route: 048
     Dates: start: 20160411, end: 20170203
  5. LYRICA [Concomitant]
     Active Substance: PREGABALIN
     Indication: POST HERPETIC NEURALGIA
     Dosage: 75 MG, QD
     Route: 048
     Dates: start: 20160613, end: 20170203
  6. DULOXETINE. [Concomitant]
     Active Substance: DULOXETINE
     Indication: POST HERPETIC NEURALGIA
     Dosage: 60 MG, QD
     Route: 048
     Dates: start: 20160517, end: 20170203

REACTIONS (5)
  - Application site erythema [Not Recovered/Not Resolved]
  - Blister [Not Recovered/Not Resolved]
  - Neuralgia [Not Recovered/Not Resolved]
  - Skin discolouration [Not Recovered/Not Resolved]
  - Drug ineffective [Not Recovered/Not Resolved]

NARRATIVE: CASE EVENT DATE: 20160810
